FAERS Safety Report 22911382 (Version 2)
Quarter: 2023Q4

REPORT INFORMATION
  Report Type: Spontaneous
  Country: IT (occurrence: IT)
  Receive Date: 20230906
  Receipt Date: 20231011
  Transmission Date: 20240110
  Serious: Yes (Hospitalization, Other)
  Sender: FDA-Public Use
  Company Number: IT-AMGEN-ITASP2023153633

PATIENT
  Age: 49 Year
  Sex: Female

DRUGS (17)
  1. PANITUMUMAB [Suspect]
     Active Substance: PANITUMUMAB
     Indication: Colorectal cancer
     Dosage: 320 MILLIGRAM
     Route: 042
     Dates: start: 202106
  2. PANITUMUMAB [Suspect]
     Active Substance: PANITUMUMAB
     Dosage: 320 MILLIGRAM
     Route: 042
     Dates: start: 202203
  3. PANITUMUMAB [Suspect]
     Active Substance: PANITUMUMAB
     Dosage: 320 MILLIGRAM
     Route: 042
     Dates: start: 202204, end: 2022
  4. BEVACIZUMAB [Suspect]
     Active Substance: BEVACIZUMAB
     Indication: Colorectal cancer
     Dosage: 270 MILLIGRAM
     Route: 042
     Dates: start: 2022, end: 2022
  5. BEVACIZUMAB [Suspect]
     Active Substance: BEVACIZUMAB
     Indication: Rectal adenocarcinoma
     Dosage: UNK
     Route: 065
  6. FLUOROURACIL [Suspect]
     Active Substance: FLUOROURACIL
     Indication: Colorectal cancer
     Dosage: 600 MILLIGRAM
     Route: 042
     Dates: start: 202106
  7. FLUOROURACIL [Suspect]
     Active Substance: FLUOROURACIL
     Dosage: 500 MILLIGRAM
     Route: 042
     Dates: start: 202204
  8. FLUOROURACIL [Suspect]
     Active Substance: FLUOROURACIL
     Dosage: UNK
     Route: 042
     Dates: start: 202208
  9. FOLIC ACID [Suspect]
     Active Substance: FOLIC ACID
     Indication: Rectal adenocarcinoma
     Dosage: UNK
     Route: 065
     Dates: start: 202106
  10. OXALIPLATIN [Suspect]
     Active Substance: OXALIPLATIN
     Indication: Colorectal cancer
     Dosage: 135 MILLIGRAM, Q2HR
     Route: 042
     Dates: start: 202106
  11. OXALIPLATIN [Suspect]
     Active Substance: OXALIPLATIN
     Dosage: 110 MILLIGRAM
     Route: 042
     Dates: start: 202204
  12. LEUCOVORIN [Suspect]
     Active Substance: LEUCOVORIN\LEUCOVORIN CALCIUM
     Indication: Colorectal cancer
     Dosage: 300 MILLIGRAM OVER 2 H
     Route: 042
     Dates: start: 202106
  13. LEUCOVORIN [Suspect]
     Active Substance: LEUCOVORIN\LEUCOVORIN CALCIUM
     Dosage: UNK
     Route: 042
     Dates: start: 202208
  14. LEUCOVORIN [Suspect]
     Active Substance: LEUCOVORIN\LEUCOVORIN CALCIUM
     Dosage: 300 MILLIGRAM
     Route: 042
     Dates: start: 202204
  15. IRINOTECAN [Suspect]
     Active Substance: IRINOTECAN
     Indication: Colorectal cancer
     Dosage: 280 MILLIGRAM, Q1HR
     Route: 042
  16. IRINOTECAN [Suspect]
     Active Substance: IRINOTECAN
     Dosage: UNK
     Route: 042
     Dates: start: 202208
  17. TIPIRACIL HYDROCHLORIDE\TRIFLURIDINE [Concomitant]
     Active Substance: TIPIRACIL HYDROCHLORIDE\TRIFLURIDINE
     Dosage: UNK UNK, 110/45 MG QD
     Route: 048
     Dates: start: 202209

REACTIONS (6)
  - Thrombocytopenic purpura [Recovered/Resolved]
  - Colorectal cancer [Unknown]
  - Antinuclear antibody positive [Unknown]
  - Blood immunoglobulin G increased [Unknown]
  - Back pain [Unknown]
  - Chills [Unknown]

NARRATIVE: CASE EVENT DATE: 20220101
